FAERS Safety Report 16092140 (Version 1)
Quarter: 2019Q1

REPORT INFORMATION
  Report Type: Other
  Country: JP (occurrence: JP)
  Receive Date: 20190319
  Receipt Date: 20190319
  Transmission Date: 20190418
  Serious: Yes (Life-Threatening)
  Sender: FDA-Public Use
  Company Number: JP-GE HEALTHCARE LIFE SCIENCES-2019CSU001522

PATIENT

DRUGS (2)
  1. OMNIPAQUE [Suspect]
     Active Substance: IOHEXOL
     Indication: PRODUCT USED FOR UNKNOWN INDICATION
  2. OMNIPAQUE [Suspect]
     Active Substance: IOHEXOL
     Indication: COMPUTERISED TOMOGRAM
     Dosage: UNK UNK, SINGLE
     Route: 042
     Dates: start: 20190309, end: 20190309

REACTIONS (2)
  - Cough [Recovered/Resolved]
  - Laryngeal discomfort [Recovered/Resolved]

NARRATIVE: CASE EVENT DATE: 20190309
